FAERS Safety Report 5572614-7 (Version None)
Quarter: 2007Q4

REPORT INFORMATION
  Report Type: 
  Country: None (occurrence: None)
  Receive Date: 20071130
  Receipt Date: 20061207
  Transmission Date: 20080405
  Serious: Yes (Other)
  Sender: FDA-Public Use
  Company Number: WAES 0605USA00848

PATIENT
  Age: 59 Year
  Sex: Female

DRUGS (7)
  1. FOSAMAX [Suspect]
     Indication: OSTEOPOROSIS
     Dosage: 70 MG WKY PO
     Route: 048
  2. ALLEGRA [Concomitant]
  3. CELEBREX [Concomitant]
  4. COZAAR [Concomitant]
  5. LIPITOR [Concomitant]
  6. NEXIUM [Concomitant]
  7. ALBUTEROL [Concomitant]

REACTIONS (1)
  - OSTEONECROSIS [None]
